FAERS Safety Report 12518852 (Version 1)
Quarter: 2016Q2

REPORT INFORMATION
  Report Type: Spontaneous
  Country: FR (occurrence: FR)
  Receive Date: 20160630
  Receipt Date: 20160630
  Transmission Date: 20160815
  Serious: Yes (Hospitalization)
  Sender: FDA-Public Use
  Company Number: PHHY2016FR088918

PATIENT
  Age: 72 Year
  Sex: Male

DRUGS (2)
  1. TETRACOSACTIDE [Suspect]
     Active Substance: COSYNTROPIN
     Indication: SCIATICA
     Dosage: 1 DF, UNK
     Route: 017
  2. ALFUZOSIN [Concomitant]
     Active Substance: ALFUZOSIN
     Indication: BENIGN PROSTATIC HYPERPLASIA
     Dosage: 5 MG, UNK
     Route: 065

REACTIONS (2)
  - Product use issue [Unknown]
  - Adrenal haemorrhage [Unknown]
